FAERS Safety Report 24553035 (Version 1)
Quarter: 2024Q4

REPORT INFORMATION
  Report Type: Spontaneous
  Country: US (occurrence: US)
  Receive Date: 20241027
  Receipt Date: 20241027
  Transmission Date: 20250114
  Serious: Yes (Other)
  Sender: SANDOZ
  Company Number: US-SANDOZ-SDZ2024US089341

PATIENT

DRUGS (6)
  1. CETIRIZINE [Suspect]
     Active Substance: CETIRIZINE HYDROCHLORIDE
     Indication: Mast cell activation syndrome
     Dosage: UNK
     Route: 065
     Dates: start: 202407
  2. CROMOLYN SODIUM [Suspect]
     Active Substance: CROMOLYN SODIUM
     Indication: Mast cell activation syndrome
     Dosage: UNK
     Route: 065
     Dates: start: 202407
  3. FAMOTIDINE [Suspect]
     Active Substance: FAMOTIDINE
     Indication: Mast cell activation syndrome
     Dosage: UNK
     Route: 065
     Dates: start: 202407
  4. MONTELUKAST [Suspect]
     Active Substance: MONTELUKAST
     Indication: Mast cell activation syndrome
     Dosage: UNK
     Route: 065
     Dates: start: 202407
  5. OMEPRAZOLE [Suspect]
     Active Substance: OMEPRAZOLE
     Indication: Mast cell activation syndrome
     Dosage: UNK
     Route: 065
     Dates: start: 202407
  6. XOLAIR [Suspect]
     Active Substance: OMALIZUMAB
     Indication: Mast cell activation syndrome
     Dosage: UNK
     Route: 065
     Dates: start: 202407

REACTIONS (4)
  - Abdominal discomfort [Unknown]
  - Condition aggravated [Unknown]
  - Flushing [Unknown]
  - Off label use [Unknown]

NARRATIVE: CASE EVENT DATE: 20240701
